FAERS Safety Report 13488200 (Version 4)
Quarter: 2017Q3

REPORT INFORMATION
  Report Type: Report from Study
  Country: US (occurrence: US)
  Receive Date: 20170426
  Receipt Date: 20170705
  Transmission Date: 20171127
  Serious: Yes (Hospitalization)
  Sender: FDA-Public Use
  Company Number: US-ACTELION-A-NJ2015-117853

PATIENT
  Age: 76 Year
  Sex: Female
  Weight: 62.59 kg

DRUGS (6)
  1. ALDACTONE [Concomitant]
     Active Substance: SPIRONOLACTONE
  2. OPSUMIT [Suspect]
     Active Substance: MACITENTAN
     Indication: PULMONARY ARTERIAL HYPERTENSION
     Dosage: 10 MG, QD
     Route: 048
  3. TYVASO [Concomitant]
     Active Substance: TREPROSTINIL
     Dosage: UNK
     Dates: end: 20170621
  4. OPSUMIT [Suspect]
     Active Substance: MACITENTAN
     Dosage: 5 MG, QD
     Route: 048
  5. LASIX [Concomitant]
     Active Substance: FUROSEMIDE
  6. REVATIO [Concomitant]
     Active Substance: SILDENAFIL CITRATE

REACTIONS (10)
  - Dyspnoea [Unknown]
  - Hypotension [Unknown]
  - General physical health deterioration [Unknown]
  - Fluid retention [Recovering/Resolving]
  - Weight increased [Recovering/Resolving]
  - Renal disorder [Unknown]
  - Cardiac disorder [Unknown]
  - Loss of consciousness [Unknown]
  - Syncope [Unknown]
  - Sinus disorder [Unknown]
